FAERS Safety Report 6639081-3 (Version None)
Quarter: 2010Q1

REPORT INFORMATION
  Report Type: 
  Country: None (occurrence: None)
  Receive Date: 20100317
  Receipt Date: 20100308
  Transmission Date: 20100710
  Serious: Yes (Hospitalization)
  Sender: FDA-Public Use
  Company Number: FR-ASTRAZENECA-2010SE10813

PATIENT
  Age: 15341 Day
  Sex: Male

DRUGS (4)
  1. NEXIUM [Suspect]
     Route: 048
     Dates: start: 20100208, end: 20100209
  2. CEFTRIAXONE WINTHROP [Suspect]
     Route: 065
     Dates: start: 20100209, end: 20100209
  3. ZECLAR [Suspect]
     Route: 048
     Dates: start: 20100208, end: 20100209
  4. WELLVONE [Suspect]
     Dosage: 750 MG/ 5 ML
     Route: 048
     Dates: start: 20100209, end: 20100209

REACTIONS (3)
  - RASH MACULO-PAPULAR [None]
  - RASH PUSTULAR [None]
  - URTICARIA [None]
